FAERS Safety Report 8964150 (Version 1)
Quarter: 2012Q4

REPORT INFORMATION
  Report Type: 
  Country: IN (occurrence: IN)
  Receive Date: 20121213
  Receipt Date: 20121213
  Transmission Date: 20130627
  Serious: Yes (Hospitalization)
  Sender: FDA-Public Use
  Company Number: IN-ROXANE LABORATORIES, INC.-2012-RO-02563RO

PATIENT
  Age: 42 Year
  Sex: Female

DRUGS (2)
  1. AZATHIOPRINE [Suspect]
     Indication: PEMPHIGUS
     Dosage: 50 mg
  2. PREDNISOLONE [Concomitant]
     Route: 048

REACTIONS (3)
  - Skin ulcer [Recovered/Resolved with Sequelae]
  - Neutropenia [Recovered/Resolved]
  - Klebsiella infection [Recovered/Resolved]
